FAERS Safety Report 6023705-8 (Version None)
Quarter: 2008Q4

REPORT INFORMATION
  Report Type: 
  Country: None (occurrence: None)
  Receive Date: 20081223
  Receipt Date: 20081209
  Transmission Date: 20090506
  Serious: Yes (Hospitalization)
  Sender: FDA-Public Use
  Company Number: IDR-00212

PATIENT
  Age: 74 Year
  Sex: Male

DRUGS (2)
  1. AVLOCARDYL (PROPRANOLOL) STRENGTH: 160MG / 40MG [Suspect]
     Dosage: 40 MG QID,  ORAL FORMULATION: CAPSULE   CONTI REL / ORAL FORMULATION:TABLET
     Route: 048
     Dates: start: 20080530, end: 20080530
  2. AVLOCARDYL (PROPRANOLOL) STRENGTH: 160MG / 40MG [Suspect]
     Dosage: 40 MG QID,  ORAL FORMULATION: CAPSULE   CONTI REL / ORAL FORMULATION:TABLET
     Route: 048
     Dates: start: 20080323

REACTIONS (3)
  - ACCIDENTAL OVERDOSE [None]
  - LOW CARDIAC OUTPUT SYNDROME [None]
  - SINUS BRADYCARDIA [None]
